FAERS Safety Report 9989664 (Version 1)
Quarter: 2014Q1

REPORT INFORMATION
  Report Type: Report from Study
  Country: US (occurrence: US)
  Receive Date: 20140310
  Receipt Date: 20140310
  Transmission Date: 20141002
  Serious: No
  Sender: FDA-Public Use
  Company Number: US-ABBVIE-13P-163-1132176-00

PATIENT
  Age: 55 Year
  Sex: Female

DRUGS (10)
  1. HUMIRA [Suspect]
     Indication: RHEUMATOID ARTHRITIS
     Dates: start: 201211
  2. NAPROSYN [Concomitant]
     Indication: RHEUMATOID ARTHRITIS
     Dosage: 500
  3. METHOTREXATE [Concomitant]
     Indication: RHEUMATOID ARTHRITIS
     Dosage: EVERY WEDS
  4. TOPROL [Concomitant]
     Indication: HYPERTENSION
  5. LOSARTAN POTASSIUM [Concomitant]
     Indication: HYPERTENSION
  6. AMLODIPINE BENAZEPRIL [Concomitant]
     Indication: BLOOD PRESSURE
     Dosage: 10/20 MG
  7. FUROSEMIDE [Concomitant]
     Indication: PRODUCT USED FOR UNKNOWN INDICATION
     Dosage: WATER PILL
  8. VIVELLE DOT [Concomitant]
     Indication: HORMONE REPLACEMENT THERAPY
     Dosage: 0.1 MG PATCH WEEKLY
  9. FOLIC ACID [Concomitant]
     Indication: RHEUMATOID ARTHRITIS
  10. SIMVASTATIN [Concomitant]
     Indication: BLOOD CHOLESTEROL

REACTIONS (4)
  - Device malfunction [Recovering/Resolving]
  - Device malfunction [Recovering/Resolving]
  - Injection site haemorrhage [Recovering/Resolving]
  - Injection site bruising [Recovering/Resolving]
